FAERS Safety Report 8372937-2 (Version None)
Quarter: 2012Q2

REPORT INFORMATION
  Report Type: 
  Country: None (occurrence: None)
  Receive Date: 20120521
  Receipt Date: 20111227
  Transmission Date: 20120825
  Serious: No
  Sender: FDA-Public Use
  Company Number: US-ASTRAZENECA-2012SE01116

PATIENT

DRUGS (1)
  1. PRILOSEC OTC [Suspect]
     Indication: ABDOMINAL PAIN UPPER
     Route: 048
     Dates: start: 20111226, end: 20111226

REACTIONS (3)
  - VOMITING [None]
  - OFF LABEL USE [None]
  - DIARRHOEA [None]
